FAERS Safety Report 4550282-0 (Version None)
Quarter: 2005Q1

REPORT INFORMATION
  Report Type: 
  Country: None (occurrence: None)
  Receive Date: 20050111
  Receipt Date: 20050111
  Transmission Date: 20050727
  Serious: Yes (Other)
  Sender: FDA-Public Use
  Company Number: None

PATIENT
  Age: 39 Year
  Sex: Female
  Weight: 54.4316 kg

DRUGS (22)
  1. AMBIEN [Suspect]
     Indication: INSOMNIA
     Dosage: 10 MG PO HS PRN
     Route: 048
     Dates: start: 20041101
  2. PREMARIN [Concomitant]
  3. PROMETRIUM [Concomitant]
  4. SYNTHROID [Concomitant]
  5. NEXIUM [Concomitant]
  6. PROZAC [Concomitant]
  7. ATENOLOL [Concomitant]
  8. KEPPRA [Concomitant]
  9. MULTI-VITAMIN [Concomitant]
  10. FOLIC ACID [Concomitant]
  11. B12 [Concomitant]
  12. CALCIUM C/VITAMIN D [Concomitant]
  13. DHEA [Concomitant]
  14. SEROQUEL [Concomitant]
  15. LIPITOR [Concomitant]
  16. OXYCONTIN [Concomitant]
  17. XANAX [Concomitant]
  18. LITHIUM [Concomitant]
  19. PHENERGAN [Concomitant]
  20. ZOFRAN [Concomitant]
  21. REGLAN [Concomitant]
  22. MARINOL [Concomitant]

REACTIONS (6)
  - AMNESIA [None]
  - LACERATION [None]
  - MOUTH INJURY [None]
  - TONGUE DISORDER [None]
  - URINARY INCONTINENCE [None]
  - VISUAL DISTURBANCE [None]
